FAERS Safety Report 7312107-X (Version None)
Quarter: 2011Q1

REPORT INFORMATION
  Report Type: 
  Country: None (occurrence: None)
  Receive Date: 20110224
  Receipt Date: 20110216
  Transmission Date: 20110831
  Serious: Yes (Other)
  Sender: FDA-Public Use
  Company Number: GR-SANOFI-AVENTIS-2011SA010029

PATIENT

DRUGS (2)
  1. PLAVIX [Suspect]
     Route: 048
  2. SITAXENTAN [Suspect]
     Indication: PULMONARY HYPERTENSION
     Route: 065
     Dates: end: 20100306

REACTIONS (1)
  - HAEMOGLOBIN DECREASED [None]
